FAERS Safety Report 13273600 (Version 2)
Quarter: 2017Q1

REPORT INFORMATION
  Report Type: Spontaneous
  Country: TN (occurrence: TN)
  Receive Date: 20170227
  Receipt Date: 20170331
  Transmission Date: 20170428
  Serious: Yes (Life-Threatening, Other)
  Sender: FDA-Public Use
  Company Number: TN-PFIZER INC-2017074978

PATIENT
  Age: 55 Year
  Sex: Male

DRUGS (8)
  1. FAMOTIDINE. [Suspect]
     Active Substance: FAMOTIDINE
     Dosage: UNK
  2. ALFACALCIDOL [Suspect]
     Active Substance: ALFACALCIDOL
     Indication: CALCIUM DEFICIENCY
     Dosage: UNK
     Dates: start: 201410
  3. AMLODIPINE BESILATE [Suspect]
     Active Substance: AMLODIPINE BESYLATE
     Dosage: UNK
  4. ACETYLSALICYLIC ACID [Concomitant]
     Active Substance: ASPIRIN
     Dosage: UNK
  5. CALCIUM [Concomitant]
     Active Substance: CALCIUM
     Indication: CALCIUM DEFICIENCY
     Dosage: UNK
     Dates: start: 201410
  6. IRON [Concomitant]
     Active Substance: IRON
     Dosage: UNK
  7. BETAXOLOL. [Suspect]
     Active Substance: BETAXOLOL
     Dosage: UNK
  8. METHYLDOPA. [Suspect]
     Active Substance: METHYLDOPA
     Indication: HYPERTENSION
     Dosage: UNK
     Dates: start: 201410

REACTIONS (1)
  - Drug reaction with eosinophilia and systemic symptoms [Recovering/Resolving]

NARRATIVE: CASE EVENT DATE: 2014
